FAERS Safety Report 22291175 (Version 2)
Quarter: 2023Q2

REPORT INFORMATION
  Report Type: Spontaneous
  Country: NL (occurrence: NL)
  Receive Date: 20230506
  Receipt Date: 20230629
  Transmission Date: 20230722
  Serious: Yes (Hospitalization, Other)
  Sender: FDA-Public Use
  Company Number: NL-MLMSERVICE-20230420-4238769-1

PATIENT
  Age: 69 Year
  Sex: Male

DRUGS (4)
  1. MYCOPHENOLATE MOFETIL [Interacting]
     Active Substance: MYCOPHENOLATE MOFETIL
     Indication: Prophylaxis against transplant rejection
     Dates: start: 2015
  2. ACYCLOVIR [Interacting]
     Active Substance: ACYCLOVIR
     Indication: Meningoencephalitis herpetic
     Dates: start: 2021
  3. ACYCLOVIR [Interacting]
     Active Substance: ACYCLOVIR
     Indication: Meningoencephalitis herpetic
     Dosage: AT LEAST 21 DAYS
  4. ACYCLOVIR [Interacting]
     Active Substance: ACYCLOVIR
     Indication: Meningoencephalitis herpetic
     Dates: start: 2021

REACTIONS (7)
  - Confusional state [Not Recovered/Not Resolved]
  - Drug interaction [Unknown]
  - Antiviral drug level above therapeutic [Recovered/Resolved]
  - Myoclonus [Recovered/Resolved]
  - Neurotoxicity [Unknown]
  - Blood creatinine increased [Recovered/Resolved]
  - Meningoencephalitis herpetic [Unknown]

NARRATIVE: CASE EVENT DATE: 20210101
